FAERS Safety Report 5778896-0 (Version None)
Quarter: 2008Q2

REPORT INFORMATION
  Report Type: 
  Country: None (occurrence: None)
  Receive Date: 20080619
  Receipt Date: 20080613
  Transmission Date: 20081010
  Serious: Yes (Hospitalization)
  Sender: FDA-Public Use
  Company Number: US-MERCK-0705USA02850

PATIENT
  Age: 63 Year
  Sex: Female

DRUGS (1)
  1. FOSAMAX [Suspect]
     Indication: OSTEOPOROSIS
     Route: 048
     Dates: start: 20010928, end: 20060428

REACTIONS (15)
  - BENIGN BREAST NEOPLASM [None]
  - BLOOD CHOLESTEROL INCREASED [None]
  - DENTAL CARIES [None]
  - GINGIVAL BLEEDING [None]
  - GINGIVAL DISORDER [None]
  - LYMPHADENOPATHY [None]
  - MELANOCYTIC NAEVUS [None]
  - PAIN IN JAW [None]
  - PERIODONTITIS [None]
  - RESORPTION BONE INCREASED [None]
  - SWELLING [None]
  - TEMPOROMANDIBULAR JOINT SYNDROME [None]
  - TOOTH DEPOSIT [None]
  - TRISMUS [None]
  - UTERINE DISORDER [None]
